FAERS Safety Report 20432093 (Version 1)
Quarter: 2022Q1

REPORT INFORMATION
  Report Type: Spontaneous
  Country: US (occurrence: None)
  Receive Date: 20220204
  Receipt Date: 20220204
  Transmission Date: 20220423
  Serious: Yes (unspecified)
  Sender: FDA-Public Use
  Company Number: None

PATIENT
  Age: 50 Year
  Sex: Female
  Weight: 92.7 kg

DRUGS (1)
  1. ALOCANE EMERGENCY BURN [Suspect]
     Active Substance: LIDOCAINE HYDROCHLORIDE
     Indication: Thermal burn
     Dosage: OTHER QUANTITY : 1 TUBE;?FREQUENCY :  APPLY3 TIMES A DAY;?
     Route: 061
     Dates: start: 20220202, end: 20220202

REACTIONS (7)
  - Hemiplegia [None]
  - Monoplegia [None]
  - Monoplegia [None]
  - Dysstasia [None]
  - Fall [None]
  - Application site hypoaesthesia [None]
  - Pharyngeal hypoaesthesia [None]

NARRATIVE: CASE EVENT DATE: 20220202
